FAERS Safety Report 4619163-8 (Version None)
Quarter: 2005Q1

REPORT INFORMATION
  Report Type: 
  Country: None (occurrence: None)
  Receive Date: 20050325
  Receipt Date: 20050316
  Transmission Date: 20050727
  Serious: Yes (Hospitalization)
  Sender: FDA-Public Use
  Company Number: FR-SANOFI-SYNTHELABO-F01200500414

PATIENT
  Sex: Female
  Weight: 52 kg

DRUGS (3)
  1. OXALIPLATIN [Suspect]
     Indication: COLORECTAL CANCER METASTATIC
     Route: 042
     Dates: start: 20040922, end: 20040922
  2. FLUOROURACIL [Suspect]
     Dosage: 400 MG/M2 BOLUS + 2400 MG/M2 OVER 46 HOURS, Q2W
     Route: 042
     Dates: start: 20040922, end: 20040924
  3. LEUCOVORIN [Suspect]
     Route: 042
     Dates: start: 20040922, end: 20040922

REACTIONS (6)
  - BLOOD SODIUM DECREASED [None]
  - DEHYDRATION [None]
  - LOSS OF CONSCIOUSNESS [None]
  - NAUSEA [None]
  - PROTEIN TOTAL INCREASED [None]
  - VOMITING [None]
